FAERS Safety Report 21092038 (Version 1)
Quarter: 2022Q3

REPORT INFORMATION
  Report Type: Spontaneous
  Country: RO (occurrence: RO)
  Receive Date: 20220718
  Receipt Date: 20220718
  Transmission Date: 20221026
  Serious: Yes (Other)
  Sender: FDA-Public Use
  Company Number: RO-ABBVIE-22K-135-4454775-00

PATIENT
  Age: 32 Year
  Sex: Male

DRUGS (6)
  1. ADALIMUMAB [Suspect]
     Active Substance: ADALIMUMAB
     Indication: Product used for unknown indication
     Dosage: UNK
     Route: 058
     Dates: start: 202011, end: 202103
  2. TOFACITINIB CITRATE [Concomitant]
     Active Substance: TOFACITINIB CITRATE
     Indication: Product used for unknown indication
     Dosage: 10 MILLIGRAM, QD
     Dates: start: 202110, end: 202205
  3. TOFACITINIB CITRATE [Concomitant]
     Active Substance: TOFACITINIB CITRATE
     Dosage: 5 MILLIGRAM, QD
     Dates: start: 202110, end: 202110
  4. TOFACITINIB CITRATE [Concomitant]
     Active Substance: TOFACITINIB CITRATE
     Dosage: 10 MILLIGRAM
  5. ETROLIZUMAB [Concomitant]
     Active Substance: ETROLIZUMAB
     Indication: Product used for unknown indication
     Dosage: UNK
     Dates: start: 2019
  6. INFLIXIMAB [Concomitant]
     Active Substance: INFLIXIMAB
     Indication: Product used for unknown indication
     Dosage: UNK

REACTIONS (7)
  - Rectal haemorrhage [Recovered/Resolved]
  - Diarrhoea haemorrhagic [Unknown]
  - Diarrhoea haemorrhagic [Recovered/Resolved]
  - Frequent bowel movements [Recovered/Resolved]
  - Loss of therapeutic response [Recovered/Resolved]
  - Weight decreased [Recovered/Resolved]
  - Condition aggravated [Unknown]

NARRATIVE: CASE EVENT DATE: 20210601
